FAERS Safety Report 9282988 (Version 1)
Quarter: 2013Q2

REPORT INFORMATION
  Report Type: Spontaneous
  Country: US (occurrence: US)
  Receive Date: 20130510
  Receipt Date: 20130510
  Transmission Date: 20140414
  Serious: No
  Sender: FDA-Public Use
  Company Number: US-GLAXOSMITHKLINE-A0971200A

PATIENT
  Age: 67 Year
  Sex: Female

DRUGS (5)
  1. TYKERB [Suspect]
     Indication: BREAST CANCER
     Dosage: 250MG SEE DOSAGE TEXT
     Route: 048
     Dates: start: 20070509
  2. SYNVISC [Concomitant]
  3. XELODA [Concomitant]
  4. TAMOXIFEN [Concomitant]
  5. ADVAIR [Concomitant]

REACTIONS (5)
  - Disease progression [Unknown]
  - Gait disturbance [Not Recovered/Not Resolved]
  - Cough [Unknown]
  - Diarrhoea [Unknown]
  - Laryngitis [Unknown]
